FAERS Safety Report 9901650 (Version 3)
Quarter: 2014Q1

REPORT INFORMATION
  Report Type: Spontaneous
  Country: US (occurrence: US)
  Receive Date: 20140217
  Receipt Date: 20140306
  Transmission Date: 20141002
  Serious: Yes (Other)
  Sender: FDA-Public Use
  Company Number: ALCN2014US000695

PATIENT
  Age: 83 Year
  Sex: Female
  Weight: 61.22 kg

DRUGS (6)
  1. SIMBRINZA [Suspect]
     Indication: GLAUCOMA
     Dosage: 1 GTT, BID
     Route: 047
     Dates: start: 20130913, end: 20140123
  2. ZIOPTAN [Concomitant]
     Indication: GLAUCOMA
     Dosage: 1 GTT, QD
     Route: 047
     Dates: start: 20130412
  3. LEVOTHYROXINE [Concomitant]
     Indication: HYPOTHYROIDISM
     Dosage: 1 DF, QD
     Dates: start: 1998
  4. METOPROLOL [Concomitant]
     Indication: BLOOD PRESSURE
     Dosage: 1 DF, BID
     Dates: start: 2010
  5. BENICAR [Concomitant]
     Indication: BLOOD PRESSURE
     Dosage: 40 MG, QD
     Dates: start: 2010
  6. ECOTRIN [Concomitant]
     Indication: BLOOD PRESSURE
     Dosage: 325 MG, QD
     Dates: start: 2010

REACTIONS (5)
  - Blood pressure increased [Unknown]
  - Dyspnoea [Not Recovered/Not Resolved]
  - Dry mouth [Recovered/Resolved]
  - Nasal dryness [Not Recovered/Not Resolved]
  - Dry eye [Recovering/Resolving]
